FAERS Safety Report 9395125 (Version 3)
Quarter: 2013Q3

REPORT INFORMATION
  Report Type: Report from Study
  Country: DE (occurrence: DE)
  Receive Date: 20130705
  Receipt Date: 20130724
  Transmission Date: 20140515
  Serious: Yes (Hospitalization)
  Sender: FDA-Public Use
  Company Number: DE-JNJFOC-20130607762

PATIENT
  Age: 75 Year
  Sex: Female
  Weight: 80.4 kg

DRUGS (26)
  1. DACOGEN [Suspect]
     Indication: ACUTE MYELOID LEUKAEMIA
     Route: 042
     Dates: start: 20130529, end: 20130602
  2. PREDNISOLON (PREDNISOLONE) [Concomitant]
     Indication: POLYMYALGIA RHEUMATICA
  3. ALLOPURINOL [Concomitant]
     Indication: PROPHYLAXIS
  4. BISOPROLOL (BISOPROLOL) [Concomitant]
     Indication: HYPERTENSION
  5. PANTOPRAZOLE (PANTOPRAZOLE) [Concomitant]
     Indication: PROPHYLAXIS
  6. TORASEMID (TORASEMIDE) [Concomitant]
     Indication: PROPHYLAXIS
  7. FLUTICASONE/SALMETEROL (GALENIC/FLUTICASONE/SALMETEROL/) [Concomitant]
     Indication: CHRONIC OBSTRUCTIVE PULMONARY DISEASE
  8. AMPHO-MORONAL (AMPHOTERICIN B) [Concomitant]
     Indication: PROPHYLAXIS
  9. CIPROFLOXACIN (CIPROFLOXACIN0 [Concomitant]
     Indication: PROPHYLAXIS
  10. CALCIMAGON D3 (LEKOVIT CA) [Concomitant]
     Indication: PROPHYLAXIS
  11. L-THYROXIN (LEVOTHYROXIND SODIUM) [Concomitant]
     Indication: HYPERTHYROIDISM
  12. VALSARTAN (VALSARTAN) [Concomitant]
     Indication: HYPERTENSION
  13. ZOPICLON (ZOPICLONE) [Concomitant]
     Indication: INSOMNIA
     Dosage: 3.75-7.5 MG
  14. AMIODARONE (AMIODARONE) [Concomitant]
     Indication: ARRHYTHMIA
     Dosage: 3.75-7.5 MG
  15. IMIPENEM CILASTATIN (CILASTATIN W/IMIPENEM) [Concomitant]
  16. HYDROCHLOROTHIAZIDE (HYDROCHLOROTHIAZIDE) [Concomitant]
  17. IPRATROPIUM BROMIDE (IPRATROPIUM BROMIDE) [Concomitant]
  18. MORPHINE [Concomitant]
  19. PARACETAMOL (PARACETAMOL) [Concomitant]
  20. VIANI (SERETIDE) [Concomitant]
  21. TORSEMIDE [Concomitant]
  22. CALCIMAGON D3 (LEKOVIT CA) [Concomitant]
  23. FUROSEMIDE (FUROSEMIDE) [Concomitant]
  24. METOPROLOL (METOPROLOL) [Concomitant]
  25. PREDNISOLON (PREDNISOLONE) [Concomitant]
  26. COLECALCIFEROL (COLECALCIFEROL0 [Concomitant]

REACTIONS (1)
  - Clostridium difficile colitis [Recovered/Resolved]
